FAERS Safety Report 8479270-9 (Version None)
Quarter: 2012Q2

REPORT INFORMATION
  Report Type: 
  Country: None (occurrence: None)
  Receive Date: 20120629
  Receipt Date: 20120621
  Transmission Date: 20120825
  Serious: Yes (Hospitalization)
  Sender: FDA-Public Use
  Company Number: US-GLAXOSMITHKLINE-A0981969A

PATIENT
  Age: 41 Year
  Sex: Male

DRUGS (1)
  1. VENTOLIN HFA [Suspect]
     Indication: BRONCHOSPASM
     Dosage: 90MCG TWICE PER DAY
     Route: 065

REACTIONS (2)
  - FALL [None]
  - RIB FRACTURE [None]
